FAERS Safety Report 6665299-X (Version None)
Quarter: 2010Q1

REPORT INFORMATION
  Report Type: 
  Country: None (occurrence: None)
  Receive Date: 20100330
  Receipt Date: 20100317
  Transmission Date: 20100710
  Serious: Yes (Life-Threatening)
  Sender: FDA-Public Use
  Company Number: CN-JNJFOC-20100200056

PATIENT
  Age: 27 Year
  Sex: Male
  Weight: 64 kg

DRUGS (1)
  1. DECITABINE (DECITABINE) LYOPHILIZED POWDER [Suspect]
     Indication: MYELODYSPLASTIC SYNDROME
     Dosage: 26 MG, INTRAVENOUS
     Route: 042
     Dates: start: 20091230, end: 20100101

REACTIONS (11)
  - AGRANULOCYTOSIS [None]
  - ALTERED STATE OF CONSCIOUSNESS [None]
  - ANAL INFECTION [None]
  - CHILLS [None]
  - DELIRIUM [None]
  - ESCHERICHIA BACTERAEMIA [None]
  - IRRITABILITY [None]
  - PROCTALGIA [None]
  - RESPIRATORY TRACT INFECTION FUNGAL [None]
  - RESTLESSNESS [None]
  - SEPTIC SHOCK [None]
